FAERS Safety Report 24439909 (Version 1)
Quarter: 2024Q4

REPORT INFORMATION
  Report Type: Spontaneous
  Country: US (occurrence: US)
  Receive Date: 20241015
  Receipt Date: 20241015
  Transmission Date: 20250115
  Serious: No
  Sender: BRACCO
  Company Number: US-BRACCO-2024US05128

PATIENT
  Age: 17 Year
  Sex: Male

DRUGS (1)
  1. VUEWAY [Suspect]
     Active Substance: GADOPICLENOL
     Indication: Magnetic resonance imaging head
     Dosage: 6.8 ML, SINGLE
     Dates: start: 20240813, end: 20240813

REACTIONS (2)
  - Nausea [Recovered/Resolved]
  - Throat tightness [Recovered/Resolved]

NARRATIVE: CASE EVENT DATE: 20240813
